FAERS Safety Report 10402258 (Version 1)
Quarter: 2014Q3

REPORT INFORMATION
  Report Type: Spontaneous
  Country: US (occurrence: None)
  Receive Date: 20140818
  Receipt Date: 20140818
  Transmission Date: 20150326
  Serious: Yes (Other)
  Sender: FDA-Public Use
  Company Number: SYM-2013-13770

PATIENT
  Age: 57 Year
  Sex: Female
  Weight: 114 kg

DRUGS (11)
  1. XYREM [Suspect]
     Active Substance: SODIUM OXYBATE
     Indication: NARCOLEPSY
     Dosage: 5,2 IN 1 D
     Route: 048
     Dates: start: 20130804, end: 201308
  2. METFORMIN [Concomitant]
     Active Substance: METFORMIN HYDROCHLORIDE
  3. ENALAPRIL [Suspect]
     Active Substance: ENALAPRIL
     Indication: PROTEIN URINE
  4. LIPITOR [Suspect]
     Active Substance: ATORVASTATIN CALCIUM
     Indication: PRODUCT USED FOR UNKNOWN INDICATION
  5. DEXILANT [Concomitant]
     Active Substance: DEXLANSOPRAZOLE
  6. TOPIRAMATE (TOPIRAMATE) [Concomitant]
     Active Substance: TOPIRAMATE
  7. SIMVASTATIN. [Suspect]
     Active Substance: SIMVASTATIN
     Indication: PRODUCT USED FOR UNKNOWN INDICATION
  8. PROVIGIL [Concomitant]
     Active Substance: MODAFINIL
  9. CODEINE [Suspect]
     Active Substance: CODEINE
     Indication: PRODUCT USED FOR UNKNOWN INDICATION
  10. ZETIA [Concomitant]
     Active Substance: EZETIMIBE
  11. CALCIUM WITH VITAMIN D3 (CALCIUM D3) (COLECALCIFEROL, CALCIUM) [Concomitant]

REACTIONS (7)
  - Hypersensitivity [None]
  - Dizziness [None]
  - Headache [None]
  - Swelling face [None]
  - Lip swelling [None]
  - Nausea [None]
  - Pruritus [None]
